FAERS Safety Report 22181409 (Version 10)
Quarter: 2024Q2

REPORT INFORMATION
  Report Type: Report from Study
  Country: CA (occurrence: CA)
  Receive Date: 20230406
  Receipt Date: 20240402
  Transmission Date: 20240716
  Serious: Yes (Hospitalization, Other)
  Sender: FDA-Public Use
  Company Number: CA-TAKEDA-2022TUS064710

PATIENT
  Age: 56 Year
  Sex: Female

DRUGS (11)
  1. VEDOLIZUMAB [Suspect]
     Active Substance: VEDOLIZUMAB
     Indication: Colitis ulcerative
     Dosage: 300 MILLIGRAM
     Route: 042
     Dates: start: 20220606
  2. VEDOLIZUMAB [Suspect]
     Active Substance: VEDOLIZUMAB
     Dosage: 300 MILLIGRAM
     Route: 042
     Dates: start: 20230411
  3. VEDOLIZUMAB [Suspect]
     Active Substance: VEDOLIZUMAB
     Dosage: 300 MILLIGRAM
     Route: 042
  4. VEDOLIZUMAB [Suspect]
     Active Substance: VEDOLIZUMAB
     Dosage: 300 MILLIGRAM, Q4WEEKS
     Route: 042
     Dates: start: 20231130
  5. VEDOLIZUMAB [Suspect]
     Active Substance: VEDOLIZUMAB
     Dosage: 300 MILLIGRAM, Q4WEEKS
     Route: 042
  6. PREDNISONE [Suspect]
     Active Substance: PREDNISONE
     Indication: Product used for unknown indication
     Dosage: 25 MILLIGRAM
     Route: 065
  7. Cortiment [Concomitant]
     Dosage: 9 MILLIGRAM
     Dates: start: 20220209
  8. POLYETHYLENE GLYCOL 3350 [Concomitant]
     Active Substance: POLYETHYLENE GLYCOL 3350
     Dosage: 17 GRAM, QD
  9. PENTASA [Concomitant]
     Active Substance: MESALAMINE
     Dosage: 1 GRAM
  10. Salofalk [Concomitant]
     Dosage: 1000 MILLIGRAM, QD
  11. ANUSOL NOS [Concomitant]
     Active Substance: BALSAM PERU\BENZYL BENZOATE\BISMUTH HYDROXIDE\BISMUTH SUBGALLATE\HYDROCORTISONE ACETATE\ZINC OXIDE
     Dosage: UNK UNK, QD

REACTIONS (21)
  - Colitis ulcerative [Recovered/Resolved with Sequelae]
  - Haematochezia [Unknown]
  - Colorectal adenoma [Unknown]
  - Abdominal pain upper [Unknown]
  - Malaise [Unknown]
  - Pain [Unknown]
  - Blood glucose increased [Unknown]
  - Myalgia [Unknown]
  - Eye pain [Unknown]
  - Drug intolerance [Unknown]
  - Rash macular [Unknown]
  - Diarrhoea [Unknown]
  - Drug level decreased [Unknown]
  - Off label use [Unknown]
  - Chest pain [Unknown]
  - Constipation [Unknown]
  - Abdominal distension [Unknown]
  - Arthralgia [Unknown]
  - Back pain [Unknown]
  - Cough [Unknown]
  - Oropharyngeal pain [Unknown]

NARRATIVE: CASE EVENT DATE: 20230526
